FAERS Safety Report 5487382-7 (Version None)
Quarter: 2007Q4

REPORT INFORMATION
  Report Type: 
  Country: None (occurrence: None)
  Receive Date: 20071016
  Receipt Date: 20071011
  Transmission Date: 20080405
  Serious: Yes (Other)
  Sender: FDA-Public Use
  Company Number: US-BOEHRINGER INGELHEIM PHARMACEUTICALS, INC.-2007-DE-06047GD

PATIENT

DRUGS (2)
  1. ASPIRIN [Suspect]
     Indication: PROPHYLAXIS
  2. DIPYRIDAMOLE [Suspect]
     Indication: PROPHYLAXIS

REACTIONS (1)
  - INTRACARDIAC THROMBUS [None]
